FAERS Safety Report 14218888 (Version 2)
Quarter: 2018Q1

REPORT INFORMATION
  Report Type: Spontaneous
  Country: US (occurrence: US)
  Receive Date: 20171123
  Receipt Date: 20180108
  Transmission Date: 20180508
  Serious: No
  Sender: FDA-Public Use
  Company Number: US-JNJFOC-20171032939

PATIENT
  Age: 45 Year
  Sex: Male
  Weight: 97.52 kg

DRUGS (2)
  1. STELARA [Suspect]
     Active Substance: USTEKINUMAB
     Indication: PSORIASIS
     Route: 058
     Dates: start: 201708
  2. BENICAR [Concomitant]
     Active Substance: OLMESARTAN MEDOXOMIL
     Indication: HYPERTENSION
     Route: 048
     Dates: start: 2016

REACTIONS (4)
  - Product leakage [Unknown]
  - Off label use [Unknown]
  - Incorrect dose administered [Unknown]
  - Drug dose omission [Unknown]

NARRATIVE: CASE EVENT DATE: 201710
